FAERS Safety Report 6640013-2 (Version None)
Quarter: 2010Q1

REPORT INFORMATION
  Report Type: 
  Country: None (occurrence: None)
  Receive Date: 20100318
  Receipt Date: 20100309
  Transmission Date: 20100710
  Serious: Yes (Other)
  Sender: FDA-Public Use
  Company Number: PHHY2010JP15173

PATIENT
  Sex: Female

DRUGS (1)
  1. RASILEZ [Suspect]
     Route: 048

REACTIONS (1)
  - HAEMORRHAGIC DIATHESIS [None]
